FAERS Safety Report 18366405 (Version 1)
Quarter: 2020Q4

REPORT INFORMATION
  Report Type: Spontaneous
  Country: BR (occurrence: BR)
  Receive Date: 20201009
  Receipt Date: 20201009
  Transmission Date: 20210114
  Serious: Yes (Hospitalization, Other)
  Sender: FDA-Public Use
  Company Number: BR-GLAXOSMITHKLINE-BR2020AMR201334

PATIENT
  Age: 35 Year
  Sex: Female

DRUGS (15)
  1. PROMETHAZINE [Concomitant]
     Active Substance: PROMETHAZINE HYDROCHLORIDE
     Indication: OEDEMA
  2. POTASSIUM PERMANGANATE [Concomitant]
     Active Substance: POTASSIUM PERMANGANATE
     Indication: ERYTHEMA
     Dosage: UNK
     Route: 061
  3. POTASSIUM PERMANGANATE [Concomitant]
     Active Substance: POTASSIUM PERMANGANATE
     Indication: BALNEOTHERAPY
  4. CIPROFLOXACIN. [Suspect]
     Active Substance: CIPROFLOXACIN
     Indication: KLEBSIELLA INFECTION
     Dosage: UNK
     Route: 042
  5. PREDNISONE. [Suspect]
     Active Substance: PREDNISONE
     Indication: ERYTHRODERMIC PSORIASIS
     Dosage: 120 MG, QD
  6. PROMETHAZINE [Concomitant]
     Active Substance: PROMETHAZINE HYDROCHLORIDE
     Indication: ERYTHEMA
     Dosage: UNK
     Route: 042
  7. DELTAMETHRIN [Concomitant]
     Active Substance: DELTAMETHRIN
     Indication: OEDEMA
  8. DELTAMETHRIN [Concomitant]
     Active Substance: DELTAMETHRIN
     Indication: ERYTHEMA
     Dosage: UNK
     Route: 061
  9. CYCLOSPORINE. [Concomitant]
     Active Substance: CYCLOSPORINE
     Indication: ERYTHRODERMIC PSORIASIS
     Dosage: 100 MG, QD
  10. POTASSIUM PERMANGANATE [Concomitant]
     Active Substance: POTASSIUM PERMANGANATE
     Indication: OEDEMA
  11. CYCLOSPORINE. [Concomitant]
     Active Substance: CYCLOSPORINE
     Dosage: 200 MG, QD
  12. ACITRETIN. [Suspect]
     Active Substance: ACITRETIN
     Indication: ERYTHRODERMIC PSORIASIS
     Dosage: 30 MG, QD
  13. PREDNISONE. [Suspect]
     Active Substance: PREDNISONE
     Dosage: 20 MG, QD
  14. ACITRETIN. [Suspect]
     Active Substance: ACITRETIN
     Dosage: 10 MG, QD
  15. HYDROCORTISONE. [Suspect]
     Active Substance: HYDROCORTISONE
     Indication: ERYTHRODERMIC PSORIASIS
     Dosage: UNK
     Route: 042

REACTIONS (5)
  - Liver function test abnormal [Unknown]
  - Erythrodermic psoriasis [Unknown]
  - Rebound effect [Unknown]
  - Pathogen resistance [Unknown]
  - Condition aggravated [Unknown]
